FAERS Safety Report 13586695 (Version 4)
Quarter: 2017Q3

REPORT INFORMATION
  Report Type: Spontaneous
  Country: PT (occurrence: PT)
  Receive Date: 20170526
  Receipt Date: 20170824
  Transmission Date: 20171127
  Serious: Yes (Hospitalization)
  Sender: FDA-Public Use
  Company Number: PT-PFIZER INC-2017226507

PATIENT
  Age: 45 Year
  Sex: Female
  Weight: 60 kg

DRUGS (6)
  1. GENOTROPIN [Suspect]
     Active Substance: SOMATROPIN
     Indication: DEPRESSION
     Dosage: 5.3 MG, 1X/DAY
     Route: 058
     Dates: start: 20161201, end: 20170427
  2. TRITICUM [Concomitant]
     Dosage: 100 MG, 1X/DAY (AT NIGHT)
     Route: 048
     Dates: start: 2015, end: 20170427
  3. OMEGA-3 FATTY ACIDS [Suspect]
     Active Substance: OMEGA-3 FATTY ACIDS
     Indication: DEPRESSION
     Dosage: 1200 MG, 2X/DAY
     Route: 048
     Dates: start: 20161201, end: 20170412
  4. SEDOXIL [Concomitant]
     Active Substance: MEXAZOLAM
     Dosage: 1 MG, 2X/DAY
     Route: 048
     Dates: start: 2015, end: 20170427
  5. EUTIROX [Concomitant]
     Active Substance: LEVOTHYROXINE SODIUM
     Indication: HYPOTHYROIDISM
     Route: 048
  6. VICTAN [Concomitant]
     Active Substance: ETHYL LOFLAZEPATE
     Dosage: 2 MG, UNK
     Route: 048
     Dates: start: 2015, end: 20170427

REACTIONS (2)
  - Product use in unapproved indication [Recovered/Resolved]
  - Hepatitis toxic [Recovered/Resolved]

NARRATIVE: CASE EVENT DATE: 20161201
